FAERS Safety Report 6656281-7 (Version None)
Quarter: 2010Q1

REPORT INFORMATION
  Report Type: 
  Country: None (occurrence: None)
  Receive Date: 20100329
  Receipt Date: 20100318
  Transmission Date: 20100710
  Serious: Yes (Life-Threatening, Disabling)
  Sender: FDA-Public Use
  Company Number: GXKR2010CZ03296

PATIENT
  Sex: Female

DRUGS (1)
  1. CARBOPLATIN [Suspect]
     Dosage: UNK
     Route: 051
     Dates: end: 20100304

REACTIONS (2)
  - BRADYCARDIA [None]
  - HYPOTENSION [None]
